FAERS Safety Report 8370840-5 (Version None)
Quarter: 2012Q2

REPORT INFORMATION
  Report Type: 
  Country: None (occurrence: None)
  Receive Date: 20120518
  Receipt Date: 20120117
  Transmission Date: 20120825
  Serious: No
  Sender: FDA-Public Use
  Company Number: US-ASTRAZENECA-2012SE07707

PATIENT
  Age: 35 Year
  Sex: Male

DRUGS (3)
  1. PRILOSEC OTC [Suspect]
     Route: 048
     Dates: start: 20120110
  2. MINERALS NOS [Concomitant]
     Dosage: UNKNOWN
  3. VITAMINS /90003601/ [Concomitant]
     Dosage: UNKNOWN

REACTIONS (3)
  - NASOPHARYNGITIS [None]
  - ABDOMINAL PAIN [None]
  - COUGH [None]
